FAERS Safety Report 7369930-5 (Version None)
Quarter: 2011Q1

REPORT INFORMATION
  Report Type: 
  Country: None (occurrence: None)
  Receive Date: 20110323
  Receipt Date: 20110310
  Transmission Date: 20110831
  Serious: Yes (Life-Threatening)
  Sender: FDA-Public Use
  Company Number: JP-PFIZER INC-2011026480

PATIENT
  Age: 64 Year
  Sex: Female
  Weight: 36 kg

DRUGS (15)
  1. OPALMON [Concomitant]
     Indication: SPINAL COLUMN STENOSIS
     Dosage: 5 UG, 3X/DAY
     Route: 048
  2. ALESION [Concomitant]
     Indication: RHINITIS ALLERGIC
     Dosage: 20 MG, 1X/DAY
     Route: 048
  3. CELESTAMINE TAB [Concomitant]
     Indication: RHINITIS ALLERGIC
     Dosage: 2 DF, 1X/DAY
     Route: 048
  4. PIMENOL [Concomitant]
     Indication: ARRHYTHMIA
     Dosage: 100 MG, 1X/DAY
     Route: 048
  5. LENDORMIN [Concomitant]
     Indication: INSOMNIA
     Dosage: 0.25 MG, 1X/DAY
     Route: 048
  6. RENAGEL [Concomitant]
     Indication: HYPERPHOSPHATAEMIA
     Dosage: 500 MG, 3X/DAY
     Route: 048
  7. PURSENNID [Concomitant]
     Indication: CONSTIPATION
     Dosage: 24 MG, 1X/DAY
     Route: 048
  8. LYRICA [Suspect]
     Indication: PAIN IN EXTREMITY
     Dosage: 25 MG DAILY
     Route: 048
     Dates: start: 20110118, end: 20110201
  9. THYRADIN [Concomitant]
     Indication: HYPOTHYROIDISM
     Dosage: 50 UG, 1X/DAY
     Route: 048
  10. LYRICA [Suspect]
     Indication: NEURALGIA
  11. OMEPRAL [Concomitant]
     Indication: REFLUX OESOPHAGITIS
     Dosage: 20 MG, 1X/DAY
     Route: 048
  12. LANIRAPID [Concomitant]
     Indication: TACHYCARDIA PAROXYSMAL
     Dosage: 0.1 MG, 1X/DAY
     Route: 048
  13. CALTAN [Concomitant]
     Indication: HYPERPHOSPHATAEMIA
     Dosage: 1000 MG, 3X/DAY
     Route: 048
  14. RISUMIC [Concomitant]
     Indication: HYPOTENSION
     Dosage: 10 MG, 1X/DAY
     Route: 048
  15. ASPIRIN [Concomitant]
     Indication: ANGINA PECTORIS
     Dosage: 100 MG, 1X/DAY
     Route: 048

REACTIONS (3)
  - INCREASED APPETITE [None]
  - BLOOD POTASSIUM INCREASED [None]
  - DRUG INEFFECTIVE [None]
